FAERS Safety Report 7575973-9 (Version None)
Quarter: 2011Q2

REPORT INFORMATION
  Report Type: 
  Country: None (occurrence: None)
  Receive Date: 20110628
  Receipt Date: 20110620
  Transmission Date: 20111010
  Serious: Yes (Death, Other)
  Sender: FDA-Public Use
  Company Number: TR-BRISTOL-MYERS SQUIBB COMPANY-15843188

PATIENT
  Age: 52 Year
  Sex: Male

DRUGS (5)
  1. PREDNISONE [Suspect]
     Indication: LYMPHOMA
  2. CYCLOPHOSPHAMIDE [Suspect]
     Indication: LYMPHOMA
  3. LAMIVUDINE [Suspect]
     Indication: LYMPHOMA
  4. VINCRISTINE [Suspect]
     Indication: LYMPHOMA
  5. RITUXIMAB [Suspect]
     Indication: LYMPHOMA

REACTIONS (3)
  - HEPATITIS B [None]
  - HEPATITIS FULMINANT [None]
  - HEPATIC FAILURE [None]
